FAERS Safety Report 18421098 (Version 3)
Quarter: 2021Q1

REPORT INFORMATION
  Report Type: Spontaneous
  Country: US (occurrence: US)
  Receive Date: 20201023
  Receipt Date: 20210201
  Transmission Date: 20210419
  Serious: Yes (Hospitalization)
  Sender: FDA-Public Use
  Company Number: US-JNJFOC-20201032114

PATIENT
  Age: 62 Year
  Sex: Female
  Weight: 68.1 kg

DRUGS (2)
  1. TREMFYA [Suspect]
     Active Substance: GUSELKUMAB
     Route: 030
  2. TREMFYA [Suspect]
     Active Substance: GUSELKUMAB
     Indication: GUTTATE PSORIASIS
     Route: 058
     Dates: start: 20201015

REACTIONS (3)
  - Product use in unapproved indication [Unknown]
  - Off label use [Unknown]
  - Urticaria [Recovered/Resolved]

NARRATIVE: CASE EVENT DATE: 20201015
